FAERS Safety Report 7645446-3 (Version None)
Quarter: 2011Q3

REPORT INFORMATION
  Report Type: 
  Country: None (occurrence: None)
  Receive Date: 20110729
  Receipt Date: 20110726
  Transmission Date: 20111222
  Serious: Yes (Other)
  Sender: FDA-Public Use
  Company Number: GB-PFIZER INC-2011126006

PATIENT
  Age: 22 Year
  Sex: Female

DRUGS (1)
  1. VARENICLINE TARTRATE [Suspect]
     Indication: SMOKING CESSATION THERAPY
     Dosage: UNK
     Route: 048
     Dates: start: 20110507, end: 20110530

REACTIONS (8)
  - PANIC ATTACK [None]
  - FEELING ABNORMAL [None]
  - NAUSEA [None]
  - DEPRESSED MOOD [None]
  - THROAT TIGHTNESS [None]
  - THINKING ABNORMAL [None]
  - ANXIETY [None]
  - TREMOR [None]
